FAERS Safety Report 17157202 (Version 1)
Quarter: 2019Q4

REPORT INFORMATION
  Report Type: Spontaneous
  Country: SE (occurrence: SE)
  Receive Date: 20191216
  Receipt Date: 20191216
  Transmission Date: 20200122
  Serious: Yes (Hospitalization)
  Sender: FDA-Public Use
  Company Number: SE-ACCORD-165153

PATIENT
  Age: 25 Year
  Sex: Female

DRUGS (6)
  1. PROPAVAN [Suspect]
     Active Substance: PROPIOMAZINE
     Dosage: MAX 30
     Route: 048
     Dates: start: 20180803, end: 20180803
  2. SERTRALINE [Suspect]
     Active Substance: SERTRALINE HYDROCHLORIDE
     Dosage: 19X50 MG
     Route: 048
     Dates: start: 20180803, end: 20180803
  3. CIRCADIN [Suspect]
     Active Substance: MELATONIN
     Route: 048
     Dates: start: 20180803, end: 20180803
  4. IPREN [Suspect]
     Active Substance: IBUPROFEN
     Route: 048
     Dates: start: 20180803, end: 20180803
  5. OXASCAND [Suspect]
     Active Substance: OXAZEPAM
     Route: 048
     Dates: start: 20180803, end: 20180803
  6. ATARAX [Suspect]
     Active Substance: HYDROXYZINE HYDROCHLORIDE
     Route: 048
     Dates: start: 20180803, end: 20180803

REACTIONS (6)
  - Intentional self-injury [Unknown]
  - Hypopnoea [Unknown]
  - Hypotension [Unknown]
  - Intentional overdose [Unknown]
  - Areflexia [Unknown]
  - Loss of consciousness [Unknown]

NARRATIVE: CASE EVENT DATE: 20180803
